FAERS Safety Report 6240697-7 (Version None)
Quarter: 2009Q2

REPORT INFORMATION
  Report Type: 
  Country: None (occurrence: None)
  Receive Date: 20090623
  Receipt Date: 20090130
  Transmission Date: 20091009
  Serious: No
  Sender: FDA-Public Use
  Company Number: US-ASTRAZENECA-2009UW02821

PATIENT
  Age: 80 Year
  Sex: Female
  Weight: 101.2 kg

DRUGS (3)
  1. PULMICORT RESPULES [Suspect]
     Indication: CHRONIC OBSTRUCTIVE PULMONARY DISEASE
     Route: 055
     Dates: start: 20090104
  2. ALBUTEROL [Concomitant]
  3. ACETYLCYSTEINE [Concomitant]

REACTIONS (3)
  - DIABETIC EYE DISEASE [None]
  - PULMONARY CONGESTION [None]
  - VISION BLURRED [None]
